FAERS Safety Report 6065251-1 (Version None)
Quarter: 2009Q1

REPORT INFORMATION
  Report Type: 
  Country: None (occurrence: None)
  Receive Date: 20090130
  Receipt Date: 20090120
  Transmission Date: 20090719
  Serious: Yes (Life-Threatening)
  Sender: FDA-Public Use
  Company Number: GXKR2009IT01065

PATIENT
  Age: 84 Year
  Sex: Female

DRUGS (3)
  1. CEFTRIAXONE [Suspect]
     Indication: ANTIBIOTIC PROPHYLAXIS
     Dosage: 1 DF ONCE, INTRAMUSCULAR
     Route: 030
     Dates: start: 20090114, end: 20090114
  2. CEFTRIAXONE [Suspect]
     Indication: PROPHYLAXIS
     Dosage: 1 DF ONCE, INTRAMUSCULAR
     Route: 030
     Dates: start: 20090114, end: 20090114
  3. CEFTRIAXONE [Suspect]
     Indication: SURGERY
     Dosage: 1 DF ONCE, INTRAMUSCULAR
     Route: 030
     Dates: start: 20090114, end: 20090114

REACTIONS (3)
  - CYANOSIS [None]
  - HYPOVOLAEMIC SHOCK [None]
  - LOSS OF CONSCIOUSNESS [None]
